FAERS Safety Report 8615289-2 (Version None)
Quarter: 2012Q3

REPORT INFORMATION
  Report Type: 
  Country: None (occurrence: None)
  Receive Date: 20120823
  Receipt Date: 20120814
  Transmission Date: 20120928
  Serious: Yes (Other)
  Sender: FDA-Public Use
  Company Number: GB-009507513-1006GBR00008

PATIENT

DRUGS (2)
  1. RIZATRIPTAN BENZOATE [Suspect]
     Indication: MIGRAINE
     Dosage: 3 DF, UNK
     Route: 048
     Dates: start: 20100504
  2. MEBEVERINE HYDROCHLORIDE [Concomitant]
     Dosage: UNK
     Dates: start: 20120507

REACTIONS (2)
  - ABORTION SPONTANEOUS [None]
  - MATERNAL EXPOSURE TIMING UNSPECIFIED [None]
